FAERS Safety Report 22039872 (Version 1)
Quarter: 2023Q1

REPORT INFORMATION
  Report Type: Report from Study
  Country: US (occurrence: US)
  Receive Date: 20230227
  Receipt Date: 20230227
  Transmission Date: 20230417
  Serious: Yes (Other)
  Sender: FDA-Public Use
  Company Number: US-TEVA-2023-US-2859720

PATIENT
  Age: 33 Year
  Sex: Female

DRUGS (2)
  1. CLARAVIS [Suspect]
     Active Substance: ISOTRETINOIN
     Indication: Product used for unknown indication
     Dosage: 60 MILLIGRAM DAILY;
     Route: 065
     Dates: start: 20220831, end: 20230214
  2. norgestimate-ethinyl estradiol OCP [Concomitant]
     Indication: Product used for unknown indication
     Dates: start: 20221206

REACTIONS (2)
  - Unintended pregnancy [Unknown]
  - Product dose omission issue [Unknown]

NARRATIVE: CASE EVENT DATE: 20221101
